FAERS Safety Report 4567124-X (Version None)
Quarter: 2005Q1

REPORT INFORMATION
  Report Type: 
  Country: None (occurrence: None)
  Receive Date: 20050201
  Receipt Date: 20050121
  Transmission Date: 20050727
  Serious: Yes (Other)
  Sender: FDA-Public Use
  Company Number: CH-JNJFOC-20050105910

PATIENT
  Age: 73 Year
  Sex: Male
  Weight: 74 kg

DRUGS (4)
  1. IMODIUM [Suspect]
     Dosage: TAKEN AS NECESSARY
     Route: 049
     Dates: start: 20040301, end: 20041201
  2. COMTAN [Concomitant]
     Indication: PARKINSON'S DISEASE
     Route: 049
  3. MADOPAR [Concomitant]
     Route: 049
  4. MADOPAR [Concomitant]
     Indication: PARKINSON'S DISEASE
     Route: 049

REACTIONS (1)
  - HALLUCINATION [None]
